FAERS Safety Report 25302858 (Version 1)
Quarter: 2025Q2

REPORT INFORMATION
  Report Type: Spontaneous
  Country: US (occurrence: US)
  Receive Date: 20250512
  Receipt Date: 20250512
  Transmission Date: 20250716
  Serious: No
  Sender: ASCENT PHARMACEUTICALS INC
  Company Number: US-ASCENT-2025ASSPO00054

PATIENT
  Sex: Female

DRUGS (1)
  1. METHYLPHENIDATE HYDROCHLORIDE [Suspect]
     Active Substance: METHYLPHENIDATE HYDROCHLORIDE
     Indication: Attention deficit hyperactivity disorder
     Route: 065

REACTIONS (3)
  - Product substitution issue [Unknown]
  - Therapeutic response changed [Unknown]
  - Product quality issue [Unknown]
